FAERS Safety Report 18476317 (Version 4)
Quarter: 2025Q4

REPORT INFORMATION
  Report Type: Spontaneous
  Country: US (occurrence: US)
  Receive Date: 20201106
  Receipt Date: 20251105
  Transmission Date: 20260118
  Serious: No
  Sender: PFIZER
  Company Number: US-PFIZER INC-2020429749

PATIENT
  Age: 71 Year
  Sex: Male

DRUGS (1)
  1. XELJANZ [Suspect]
     Active Substance: TOFACITINIB CITRATE
     Dosage: 5 MG TABLET TAKE 1 TABLET BY MOUTH 2 TIMES DAILY- ORAL
     Route: 048
     Dates: start: 201904

REACTIONS (4)
  - Condition aggravated [Unknown]
  - Hypertension [Unknown]
  - Cardiovascular disorder [Unknown]
  - Macule [Unknown]
